FAERS Safety Report 9168408 (Version 3)
Quarter: 2014Q1

REPORT INFORMATION
  Report Type: Spontaneous
  Country: US (occurrence: US)
  Receive Date: 20130318
  Receipt Date: 20140328
  Transmission Date: 20141002
  Serious: Yes (Hospitalization, Other)
  Sender: FDA-Public Use
  Company Number: US-MERCK-1303USA007590

PATIENT
  Sex: Female
  Weight: 86.17 kg

DRUGS (4)
  1. FOSAMAX [Suspect]
     Indication: OSTEOPENIA
     Dosage: 35 MG, UNK
     Route: 048
  2. FOSAMAX PLUS D [Suspect]
     Indication: OSTEOPENIA
     Dosage: 70 MG, UNK
     Route: 048
  3. ALENDRONATE SODIUM [Suspect]
     Indication: OSTEOPENIA
     Dosage: UNK
  4. PREMPRO [Concomitant]
     Indication: MENOPAUSAL SYMPTOMS
     Dosage: UNK
     Dates: start: 2001

REACTIONS (13)
  - Intramedullary rod insertion [Unknown]
  - Foot fracture [Unknown]
  - Femur fracture [Unknown]
  - Thrombosis [Unknown]
  - Fall [Unknown]
  - Blood cholesterol increased [Unknown]
  - Hysteroscopy [Unknown]
  - Osteoporosis [Unknown]
  - Body height decreased [Unknown]
  - Electrocardiogram abnormal [Unknown]
  - Hypothyroidism [Unknown]
  - Migraine [Unknown]
  - Breast cyst [Unknown]
